FAERS Safety Report 17472107 (Version 2)
Quarter: 2020Q1

REPORT INFORMATION
  Report Type: Spontaneous
  Country: CN (occurrence: CN)
  Receive Date: 20200228
  Receipt Date: 20200308
  Transmission Date: 20200409
  Serious: Yes (Other)
  Sender: FDA-Public Use
  Company Number: NVSC2020CN051939

PATIENT
  Age: 34 Year
  Sex: Female

DRUGS (2)
  1. LOTENSIN [Suspect]
     Active Substance: BENAZEPRIL HYDROCHLORIDE
     Dosage: 5 MG, QD
     Route: 048
     Dates: start: 201911
  2. LOTENSIN [Suspect]
     Active Substance: BENAZEPRIL HYDROCHLORIDE
     Indication: GLOMERULONEPHRITIS CHRONIC
     Dosage: 1.5 DF (1 TAB OF LOTENSIN 10MG AND HALF TAB OF LOTENSIN 5MG EVERY MORNING)
     Route: 048

REACTIONS (3)
  - Hypersensitivity [Not Recovered/Not Resolved]
  - Product use in unapproved indication [Unknown]
  - Product physical issue [Unknown]

NARRATIVE: CASE EVENT DATE: 202002
